FAERS Safety Report 24117950 (Version 2)
Quarter: 2024Q3

REPORT INFORMATION
  Report Type: Spontaneous
  Country: CA (occurrence: CA)
  Receive Date: 20240722
  Receipt Date: 20240917
  Transmission Date: 20241016
  Serious: Yes (Other)
  Sender: CELLTRION
  Company Number: CA-PFIZER INC-202400172195

PATIENT

DRUGS (15)
  1. INFLECTRA [Suspect]
     Active Substance: INFLIXIMAB-DYYB
     Indication: Colitis ulcerative
     Dosage: 7500 UG/KG, EVERY 8 WEEK
     Route: 041
     Dates: start: 20240322
  2. INFLECTRA [Suspect]
     Active Substance: INFLIXIMAB-DYYB
     Dosage: 7500 UG/KG (900 MG),EVERY 8 WEEK
     Route: 041
     Dates: start: 20240517
  3. INFLECTRA [Suspect]
     Active Substance: INFLIXIMAB-DYYB
     Dosage: 900 MG, EVERY 8 WEEK
     Route: 041
     Dates: start: 20240712, end: 20240712
  4. INFLECTRA [Suspect]
     Active Substance: INFLIXIMAB-DYYB
     Dosage: 892.5 MG, EVERY 8 WEEK
     Route: 041
     Dates: start: 20240906
  5. AZATHIOPRINE [Concomitant]
     Active Substance: AZATHIOPRINE
     Dosage: 50 MG
  6. CETIRIZINE [Concomitant]
     Active Substance: CETIRIZINE HYDROCHLORIDE
     Dosage: UNK
  7. FLECAINIDE [Concomitant]
     Active Substance: FLECAINIDE
     Dosage: 100 UG
  8. MYRBETRIQ [Concomitant]
     Active Substance: MIRABEGRON
     Dosage: 50 MG
  9. OMEPRAZOLE [Concomitant]
     Active Substance: OMEPRAZOLE
     Dosage: 20 MG
  10. PRAVASTATIN [Concomitant]
     Active Substance: PRAVASTATIN
     Dosage: 40 MG
  11. SAXENDA [Concomitant]
     Active Substance: LIRAGLUTIDE
     Dosage: 6 MG/ML
  12. TERAZOSIN [Concomitant]
     Active Substance: TERAZOSIN HYDROCHLORIDE
     Dosage: 2 MG
  13. TELMISARTAN [Concomitant]
     Active Substance: TELMISARTAN
     Dosage: 8025 MG
  14. TIAZAC [Concomitant]
     Active Substance: DILTIAZEM HYDROCHLORIDE
     Dosage: 120 MG
  15. XARELTO [Concomitant]
     Active Substance: RIVAROXABAN
     Dosage: 20 MG

REACTIONS (3)
  - Blood pressure increased [Unknown]
  - Condition aggravated [Not Recovered/Not Resolved]
  - Prostatomegaly [Unknown]

NARRATIVE: CASE EVENT DATE: 20240101
